FAERS Safety Report 15762255 (Version 2)
Quarter: 2019Q1

REPORT INFORMATION
  Report Type: Report from Study
  Country: US (occurrence: US)
  Receive Date: 20181226
  Receipt Date: 20190215
  Transmission Date: 20190417
  Serious: Yes (Other)
  Sender: FDA-Public Use
  Company Number: PHEH2018US053920

PATIENT
  Sex: Female

DRUGS (1)
  1. GILENYA [Suspect]
     Active Substance: FINGOLIMOD HYDROCHLORIDE
     Indication: MULTIPLE SCLEROSIS
     Dosage: 0.5 MG, QD
     Route: 048
     Dates: start: 20180418, end: 201812

REACTIONS (10)
  - Eye swelling [Unknown]
  - Crying [Unknown]
  - Anger [Unknown]
  - Vision blurred [Unknown]
  - Heart rate decreased [Unknown]
  - Clumsiness [Unknown]
  - Speech disorder [Unknown]
  - Neoplasm malignant [Unknown]
  - Vertigo [Unknown]
  - Cognitive disorder [Unknown]
